FAERS Safety Report 5809153-1 (Version None)
Quarter: 2008Q3

REPORT INFORMATION
  Report Type: 
  Country: None (occurrence: None)
  Receive Date: 20080714
  Receipt Date: 20080709
  Transmission Date: 20090109
  Serious: Yes (Death)
  Sender: FDA-Public Use
  Company Number: JP-ASTRAZENECA-2007AP05415

PATIENT
  Age: 16874 Day
  Sex: Female
  Weight: 40 kg

DRUGS (4)
  1. NOLVADEX [Suspect]
     Indication: BREAST CANCER
     Route: 048
     Dates: start: 20050527, end: 20060608
  2. TAXOL [Suspect]
     Indication: BREAST CANCER
     Route: 041
     Dates: start: 20050513, end: 20060406
  3. HERCEPTIN [Suspect]
     Indication: BREAST CANCER
     Route: 041
     Dates: start: 20050527, end: 20060608
  4. FAMOTIDINE [Concomitant]
     Indication: DYSPEPSIA
     Route: 048
     Dates: start: 20050527, end: 20060608

REACTIONS (1)
  - HEPATIC FAILURE [None]
